FAERS Safety Report 6217881-1 (Version None)
Quarter: 2009Q2

REPORT INFORMATION
  Report Type: 
  Country: None (occurrence: None)
  Receive Date: 20090608
  Receipt Date: 20090601
  Transmission Date: 20091009
  Serious: Yes (Death, Life-Threatening, Hospitalization)
  Sender: FDA-Public Use
  Company Number: US-ROCHE-635797

PATIENT
  Age: 47 Year
  Sex: Female

DRUGS (15)
  1. CAPECITABINE [Suspect]
     Dosage: FOLLOWED BY ONE WEEK OFF
     Route: 048
     Dates: start: 20060901, end: 20070101
  2. CAPECITABINE [Suspect]
     Route: 048
  3. CAPECITABINE [Suspect]
     Dosage: ADMINISTERED SIX CYCLES
     Route: 048
     Dates: start: 20070101, end: 20070601
  4. BEVACIZUMAB [Suspect]
     Dosage: EVERY THREE WEEKS
     Route: 042
     Dates: start: 20060901, end: 20070101
  5. BEVACIZUMAB [Suspect]
     Dosage: ADDITIONAL SIX CYCLES
     Route: 042
     Dates: start: 20070101, end: 20070601
  6. RITUXIMAB [Suspect]
     Route: 065
  7. RITUXIMAB [Suspect]
     Route: 065
  8. GEMCITABINE [Suspect]
     Dosage: WEEKLY INFUSION FOR TWO WEEKS FOLLOWED BY ONE WEEK OFF
     Route: 065
     Dates: start: 20060901, end: 20070101
  9. GEMCITABINE [Suspect]
     Dosage: FOLLOWED BY ONE WEEK OFF.
     Route: 065
  10. GEMCITABINE [Suspect]
     Dosage: ADMINISTERED SIX CYCLES
     Route: 065
     Dates: start: 20070101, end: 20070601
  11. DEXAMETHASONE [Suspect]
     Dosage: ADMINISTERED ON DAY ONE TO THREE OF THE CHEMOTHERAPY CYCLE
     Route: 048
  12. VINCRISTINE [Suspect]
     Route: 042
  13. FUROSEMIDE [Concomitant]
     Route: 048
  14. FUROSEMIDE [Concomitant]
     Dosage: DOSAGE INCREASED
     Route: 048
  15. METHYLPREDNISOLONE [Concomitant]
     Route: 042

REACTIONS (6)
  - CARDIAC FAILURE CONGESTIVE [None]
  - DEATH [None]
  - GRAND MAL CONVULSION [None]
  - HAEMOLYTIC URAEMIC SYNDROME [None]
  - HYPERTENSION [None]
  - NEPHROTIC SYNDROME [None]
